FAERS Safety Report 24344146 (Version 1)
Quarter: 2024Q3

REPORT INFORMATION
  Report Type: Spontaneous
  Country: US (occurrence: US)
  Receive Date: 20240920
  Receipt Date: 20240920
  Transmission Date: 20241017
  Serious: No
  Sender: PFIZER
  Company Number: US-PFIZER INC-202400256952

PATIENT
  Age: 10 Year
  Sex: Male
  Weight: 22.23 kg

DRUGS (1)
  1. SOMATROPIN [Suspect]
     Active Substance: SOMATROPIN
     Dosage: UNK

REACTIONS (1)
  - Injection site pain [Unknown]
